FAERS Safety Report 24985521 (Version 1)
Quarter: 2025Q1

REPORT INFORMATION
  Report Type: Spontaneous
  Country: US (occurrence: None)
  Receive Date: 20250219
  Receipt Date: 20250219
  Transmission Date: 20250409
  Serious: Yes (Hospitalization)
  Sender: FDA-CTU
  Company Number: None

PATIENT
  Age: 77 Year
  Sex: Male

DRUGS (1)
  1. DROXIDOPA [Suspect]
     Active Substance: DROXIDOPA
     Indication: Product used for unknown indication
     Dosage: OTHER QUANTITY : TAKE 2 CAPSULES;?FREQUENCY : DAILY;?
     Route: 048
     Dates: start: 20230926

REACTIONS (1)
  - Colectomy [None]

NARRATIVE: CASE EVENT DATE: 20250101
